FAERS Safety Report 22957527 (Version 6)
Quarter: 2024Q3

REPORT INFORMATION
  Report Type: Report from Study
  Country: US (occurrence: US)
  Receive Date: 20230919
  Receipt Date: 20240925
  Transmission Date: 20241016
  Serious: Yes (Other)
  Sender: NOVARTIS
  Company Number: US-002147023-NVSC2023US199967

PATIENT
  Sex: Male

DRUGS (2)
  1. ENTRESTO [Suspect]
     Active Substance: SACUBITRIL\VALSARTAN
     Indication: Product used for unknown indication
     Dosage: 24/26 MG, BID
     Route: 065
     Dates: start: 20230831
  2. DILTIAZEM [Suspect]
     Active Substance: DILTIAZEM
     Indication: Product used for unknown indication
     Dosage: UNK
     Route: 065

REACTIONS (10)
  - Chronic kidney disease [Unknown]
  - Blood creatinine increased [Unknown]
  - Syncope [Recovered/Resolved]
  - Dizziness [Recovering/Resolving]
  - Dehydration [Unknown]
  - Dyspepsia [Unknown]
  - Hypertension [Unknown]
  - Weight decreased [Unknown]
  - Blood glucose fluctuation [Unknown]
  - Hypotension [Recovering/Resolving]
